FAERS Safety Report 17008745 (Version 1)
Quarter: 2019Q4

REPORT INFORMATION
  Report Type: Spontaneous
  Country: CN (occurrence: CN)
  Receive Date: 20191108
  Receipt Date: 20191108
  Transmission Date: 20200122
  Serious: Yes (Hospitalization)
  Sender: FDA-Public Use
  Company Number: CN-SA-2019SA305312

PATIENT
  Age: 59 Year
  Sex: Female
  Weight: 50 kg

DRUGS (4)
  1. ELOXATIN [Suspect]
     Active Substance: OXALIPLATIN
     Indication: ADENOCARCINOMA OF COLON
  2. GLUCOSE [Concomitant]
     Active Substance: DEXTROSE
     Indication: ADENOCARCINOMA OF COLON
  3. ELOXATIN [Suspect]
     Active Substance: OXALIPLATIN
     Indication: CHEMOTHERAPY
     Dosage: 150 MG, QD
     Route: 041
     Dates: start: 20191017, end: 20191017
  4. GLUCOSE [Concomitant]
     Active Substance: DEXTROSE
     Indication: CHEMOTHERAPY
     Dosage: 500 ML, QD
     Route: 041
     Dates: start: 20191017, end: 20191017

REACTIONS (2)
  - Chills [Recovering/Resolving]
  - Nausea [Recovering/Resolving]

NARRATIVE: CASE EVENT DATE: 20191017
